FAERS Safety Report 8464084-6 (Version None)
Quarter: 2012Q2

REPORT INFORMATION
  Report Type: 
  Country: None (occurrence: None)
  Receive Date: 20120625
  Receipt Date: 20120614
  Transmission Date: 20120825
  Serious: Yes (Other)
  Sender: FDA-Public Use
  Company Number: JP-PFIZER INC-2012148619

PATIENT
  Age: 62 Year
  Sex: Female

DRUGS (6)
  1. ACTOS [Concomitant]
     Dosage: UNK
  2. VITAMEDIN CAPSULE [Concomitant]
     Dosage: UNK
     Dates: start: 20101115
  3. KINEDAK [Concomitant]
     Dosage: UNK
  4. MIGLITOL [Suspect]
     Indication: TYPE 2 DIABETES MELLITUS
     Dosage: UNK
  5. METHOCABAL [Concomitant]
     Dosage: UNK
  6. HUMALOG [Concomitant]
     Dosage: UNK

REACTIONS (1)
  - NEUROPATHY PERIPHERAL [None]
